FAERS Safety Report 7740667-3 (Version None)
Quarter: 2011Q3

REPORT INFORMATION
  Report Type: 
  Country: None (occurrence: None)
  Receive Date: 20110909
  Receipt Date: 20110902
  Transmission Date: 20111222
  Serious: Yes (Other)
  Sender: FDA-Public Use
  Company Number: SE-PURDUE-GBR-2011-0008774

PATIENT
  Sex: Female

DRUGS (3)
  1. MORPHINE SULFATE [Suspect]
     Dosage: 10 MG, BID
     Dates: start: 20110801, end: 20110831
  2. MORPHINE SULFATE [Suspect]
     Dosage: 5 MG, BID
  3. MORPHINE SULFATE [Suspect]
     Indication: PRODUCT USED FOR UNKNOWN INDICATION
     Dosage: 10 UNK, DAILY
     Dates: start: 20110901

REACTIONS (4)
  - CHEST DISCOMFORT [None]
  - MUSCLE SPASMS [None]
  - UPPER LIMB FRACTURE [None]
  - SENSATION OF PRESSURE [None]
